FAERS Safety Report 25440016 (Version 1)
Quarter: 2025Q2

REPORT INFORMATION
  Report Type: Spontaneous
  Country: US (occurrence: US)
  Receive Date: 20250616
  Receipt Date: 20250616
  Transmission Date: 20250717
  Serious: No
  Sender: ITALFARMACO SPA
  Company Number: US-ITALFARMACO SPA-2178772

PATIENT
  Age: 11 Year
  Sex: Male
  Weight: 27.09 kg

DRUGS (1)
  1. DUVYZAT [Suspect]
     Active Substance: GIVINOSTAT
     Indication: Duchenne muscular dystrophy
     Dates: start: 20250310

REACTIONS (3)
  - Platelet count decreased [Unknown]
  - Abdominal discomfort [Unknown]
  - Blood triglycerides increased [Unknown]
